FAERS Safety Report 10446090 (Version 1)
Quarter: 2014Q3

REPORT INFORMATION
  Report Type: Spontaneous
  Country: HR (occurrence: HR)
  Receive Date: 20140910
  Receipt Date: 20140910
  Transmission Date: 20150326
  Serious: Yes (Death)
  Sender: FDA-Public Use
  Company Number: HR-SPECTRUM PHARMACEUTICALS, INC.-14-F-HR-00236

PATIENT
  Age: 45 Year
  Sex: Female

DRUGS (4)
  1. FLUOROURACIL. [Suspect]
     Active Substance: FLUOROURACIL
     Indication: COLORECTAL CANCER METASTATIC
     Dosage: 400 MG/M2, SINGLE, IV PUSH, C1D1
     Route: 042
  2. IRINOTECAN [Suspect]
     Active Substance: IRINOTECAN
     Indication: COLORECTAL CANCER METASTATIC
     Dosage: 180 MG/M2,  C1D1, 2 HRS INFUSION
     Route: 042
  3. FLUOROURACIL. [Suspect]
     Active Substance: FLUOROURACIL
     Dosage: 2400 MG/M2, C1D1 AND D2, 48HR INFUSION
     Route: 042
  4. LEUCOVORIN                         /00566701/ [Suspect]
     Active Substance: LEUCOVORIN
     Indication: COLORECTAL CANCER METASTATIC
     Dosage: 400 MG/M2, C1D1, 2 HRS INFUSION

REACTIONS (6)
  - Coma [None]
  - Blood pressure increased [None]
  - Subarachnoid haemorrhage [None]
  - Metastases to liver [None]
  - Metastases to lung [None]
  - Posterior reversible encephalopathy syndrome [Fatal]
